FAERS Safety Report 8265075-0 (Version None)
Quarter: 2012Q2

REPORT INFORMATION
  Report Type: 
  Country: None (occurrence: None)
  Receive Date: 20120406
  Receipt Date: 20120326
  Transmission Date: 20120825
  Serious: Yes (Hospitalization)
  Sender: FDA-Public Use
  Company Number: HK-ROCHE-1051295

PATIENT
  Sex: Male

DRUGS (26)
  1. FAMOTIDINE [Concomitant]
     Dates: start: 20120130
  2. SALMETEROL [Concomitant]
     Dates: start: 20120130
  3. TIOTROPIUM [Concomitant]
     Dates: start: 20111230
  4. COCILLANA [Concomitant]
     Dates: start: 20120130
  5. METOCLOPRAMIDE [Concomitant]
     Dates: start: 20110226
  6. ACETYLCYSTEINE [Concomitant]
     Dates: start: 20120224
  7. CISPLATIN [Suspect]
     Indication: NASOPHARYNGEAL CANCER
     Dosage: LAST DOSE PRIOR TO SAE: 28/JAN/2012
     Route: 042
     Dates: start: 20120127
  8. CHLORPHENIRAMINE MALEATE [Concomitant]
     Dates: start: 20120130
  9. CLOTRIMAZOLE [Concomitant]
     Dates: start: 20120130
  10. ENZYPLEX (HONG KONG) [Concomitant]
     Dates: start: 20120130
  11. CODEINE SULFATE [Concomitant]
     Dates: start: 20110226
  12. DILTIAZEM HCL [Concomitant]
     Dates: start: 20120224
  13. FLUTICASONE FUROATE [Concomitant]
     Dates: start: 20120130
  14. SALMETEROL [Concomitant]
     Dates: start: 20120224
  15. FLUTICASONE FUROATE [Concomitant]
     Dates: start: 20120224
  16. TIOTROPIUM [Concomitant]
     Dates: start: 20120224
  17. XELODA [Suspect]
     Indication: NASOPHARYNGEAL CANCER
     Dosage: LAST DOSE PRIOR TO SAE: 09/FEB/2012
     Route: 048
     Dates: start: 20120127
  18. ALBUTEROL [Concomitant]
     Dates: start: 20120130
  19. ALBUTEROL [Concomitant]
     Dates: start: 20120224
  20. PARAFFIN [Concomitant]
     Dates: start: 20110226
  21. PYRIDOXINE HCL [Concomitant]
     Dates: start: 20120226
  22. CARBOPLATIN [Suspect]
     Indication: NASOPHARYNGEAL CANCER
     Route: 042
     Dates: start: 20120305
  23. CHLORPHENIRAMINE MALEATE [Concomitant]
     Dates: start: 20120301
  24. CLOTRIMAZOLE [Concomitant]
     Dates: start: 20120224
  25. FAMOTIDINE [Concomitant]
     Dates: start: 20120224
  26. COCILLANA [Concomitant]
     Dates: start: 20120323

REACTIONS (1)
  - CHRONIC OBSTRUCTIVE PULMONARY DISEASE [None]
